FAERS Safety Report 8166828-X (Version None)
Quarter: 2012Q1

REPORT INFORMATION
  Report Type: 
  Country: None (occurrence: None)
  Receive Date: 20120227
  Receipt Date: 20120214
  Transmission Date: 20120608
  Serious: Yes (Hospitalization)
  Sender: FDA-Public Use
  Company Number: NO-ROCHE-1042642

PATIENT
  Age: 80 Year
  Sex: Male

DRUGS (4)
  1. LUCENTIS [Suspect]
     Route: 050
     Dates: start: 20110524
  2. LUCENTIS [Suspect]
     Route: 050
     Dates: start: 20101101
  3. LUCENTIS [Suspect]
     Indication: RETINAL OEDEMA
     Route: 050
     Dates: start: 20100901
  4. LUCENTIS [Suspect]
     Route: 050
     Dates: start: 20110201

REACTIONS (3)
  - ATRIAL FIBRILLATION [None]
  - APHASIA [None]
  - CEREBRAL INFARCTION [None]
